FAERS Safety Report 14106846 (Version 1)
Quarter: 2017Q4

REPORT INFORMATION
  Report Type: Spontaneous
  Country: US (occurrence: US)
  Receive Date: 20171019
  Receipt Date: 20171019
  Transmission Date: 20180321
  Serious: No
  Sender: FDA-Public Use
  Company Number: US-PFIZER INC-2017448155

PATIENT
  Age: 35 Year
  Sex: Female

DRUGS (1)
  1. SULFASALAZINE. [Suspect]
     Active Substance: SULFASALAZINE
     Indication: RHEUMATOID ARTHRITIS
     Dosage: UNK
     Dates: start: 20160429, end: 20160517

REACTIONS (7)
  - Nausea [Unknown]
  - Drug intolerance [Unknown]
  - Decreased appetite [Unknown]
  - Fatigue [Unknown]
  - Dizziness [Unknown]
  - Headache [Unknown]
  - Drug hypersensitivity [Unknown]
